FAERS Safety Report 24601857 (Version 1)
Quarter: 2024Q4

REPORT INFORMATION
  Report Type: Spontaneous
  Country: US (occurrence: US)
  Receive Date: 20241111
  Receipt Date: 20241111
  Transmission Date: 20250114
  Serious: No
  Sender: Haleon PLC
  Company Number: US-HALEON-2207286

PATIENT

DRUGS (1)
  1. FLONASE ALLERGY RELIEF [Suspect]
     Active Substance: FLUTICASONE PROPIONATE
     Indication: Rhinorrhoea

REACTIONS (2)
  - Ophthalmic migraine [Unknown]
  - Drug ineffective [Unknown]
